FAERS Safety Report 10035544 (Version 1)
Quarter: 2014Q1

REPORT INFORMATION
  Report Type: Spontaneous
  Country: US (occurrence: None)
  Receive Date: 20140306
  Receipt Date: 20140306
  Transmission Date: 20141002
  Serious: Yes (Hospitalization)
  Sender: FDA-Public Use
  Company Number: 163-21880-12081115

PATIENT
  Age: 73 Year
  Sex: Male

DRUGS (33)
  1. REVLIMID (LENALIDOMIDE) (CAPSULES) [Suspect]
     Indication: PLASMA CELL MYELOMA
     Route: 048
     Dates: start: 20120103
  2. DEXAMETHASONE (DEXAMETHASONE) (UNKNOWN) [Suspect]
     Indication: PLASMA CELL MYELOMA
     Route: 048
     Dates: start: 20120103
  3. TRANSFUSION (BLOOD CELLS, PACKED HUMAN) [Concomitant]
  4. MORPHINE (MORPHINE) [Concomitant]
  5. GLYBURIDE (GLIBENCLAMIDE) [Concomitant]
  6. COMPAZINE (PROCHLORPERAZINE EDISYLATE) [Concomitant]
  7. ACETYLSALICYLIC ACID (ACETYLSALICYLIC ACID) [Concomitant]
  8. HYDROCODONE (HYDROCODONE) [Concomitant]
  9. ZOMETA (ZOLEDRONIC ACID) [Concomitant]
  10. KETODOLAC [Concomitant]
  11. ZOFRAN (ONDANSETRON HYDROCHLORIDE) [Concomitant]
  12. ROCEPHIN (CEFTRIAXONE SODIUM) [Concomitant]
  13. MOXIFLOXACIN (MOXIFLOXACIN) [Concomitant]
  14. DOPAMINE (DOPAMINE) [Concomitant]
  15. HEPARIN GTT (HEPARIN) [Concomitant]
  16. NEXIUM (ESOMEPRAZOLE) [Concomitant]
  17. VANCOMYCIN (VANCOMYCIN) [Concomitant]
  18. SOLU-CORTEF (HYDROCORTISONE SODIUM SUCCINATE) [Concomitant]
  19. ZOSYN (PIP/TAZO) [Concomitant]
  20. ALBUTEROL/IPRATROPIUM (COMBIVENT) [Concomitant]
  21. GUAFENESIN XR (GUAIFENESIN) [Concomitant]
  22. BENZONATATE (BENZONATATE) [Concomitant]
  23. ROBITUSSIN DM (GUAIFENESIN) [Concomitant]
  24. PREDNISONE (PREDNISONE) [Concomitant]
  25. MEROPENEM (MEROPENEM) [Concomitant]
  26. LEVAQUIN (LEVOFLOXACIN) [Concomitant]
  27. ACTIGALL (URSODEOXYCHOLIC ACID) [Concomitant]
  28. PLERIFAXOR (PLERIXAFOR) [Concomitant]
  29. SODIUM CHLORIDE (SODIUM CHLORIDE) [Concomitant]
  30. COLACE (DOCUSATE SODIUM) [Concomitant]
  31. FONTANYL (ALL OTHER THERAPEUTIC PRODUCTS) [Concomitant]
  32. MULTIVITAMINS (MULTIVITAMINS) [Concomitant]
  33. OXYCODONE (OXYCODONE) [Concomitant]

REACTIONS (1)
  - Pyrexia [None]
